FAERS Safety Report 9510321 (Version 1)
Quarter: 2013Q3

REPORT INFORMATION
  Report Type: Spontaneous
  Country: US (occurrence: US)
  Receive Date: 20130909
  Receipt Date: 20130909
  Transmission Date: 20140515
  Serious: No
  Sender: FDA-Public Use
  Company Number: US-BRISTOL-MYERS SQUIBB COMPANY-17457508

PATIENT
  Age: 71 Year
  Sex: Female
  Weight: 72.56 kg

DRUGS (5)
  1. ABILIFY [Suspect]
     Indication: DEPRESSION
     Dates: start: 20130305
  2. ZOLOFT [Concomitant]
     Indication: DEPRESSION
  3. WELLBUTRIN [Concomitant]
     Indication: DEPRESSION
  4. LOSARTAN [Concomitant]
     Indication: BLOOD PRESSURE
  5. LUBIPROSTONE [Concomitant]

REACTIONS (3)
  - Constipation [Unknown]
  - Poor quality sleep [Unknown]
  - Abdominal discomfort [Unknown]
